FAERS Safety Report 4885755-4 (Version None)
Quarter: 2006Q1

REPORT INFORMATION
  Report Type: 
  Country: None (occurrence: None)
  Receive Date: 20060117
  Receipt Date: 20060103
  Transmission Date: 20060701
  Serious: Yes (Hospitalization)
  Sender: FDA-Public Use
  Company Number: 108653ISR

PATIENT
  Age: 30 Year
  Sex: Male

DRUGS (1)
  1. GLATIRAMER ACETATE [Suspect]
     Indication: MULTIPLE SCLEROSIS
     Dosage: 20 MILLIGRAM
     Route: 058
     Dates: start: 20050101

REACTIONS (6)
  - IMPAIRED HEALING [None]
  - INFLAMMATION OF WOUND [None]
  - PAIN [None]
  - POST PROCEDURAL COMPLICATION [None]
  - PYREXIA [None]
  - SKIN DISORDER [None]
